FAERS Safety Report 8288786-X (Version None)
Quarter: 2012Q2

REPORT INFORMATION
  Report Type: 
  Country: None (occurrence: None)
  Receive Date: 20120417
  Receipt Date: 20120406
  Transmission Date: 20120825
  Serious: No
  Sender: FDA-Public Use
  Company Number: US-BIOGENIDEC-2012BI012382

PATIENT
  Sex: Female

DRUGS (4)
  1. TYSABRI [Suspect]
     Indication: MULTIPLE SCLEROSIS
     Route: 042
     Dates: start: 20050103
  2. TYSABRI [Suspect]
     Route: 042
     Dates: start: 20110921
  3. TYSABRI [Suspect]
     Route: 042
     Dates: start: 20061003, end: 20110405
  4. AVONEX [Concomitant]
     Indication: MULTIPLE SCLEROSIS
     Route: 030
     Dates: start: 20030625, end: 20050125

REACTIONS (2)
  - DYSKINESIA [None]
  - SLEEP APNOEA SYNDROME [None]
